FAERS Safety Report 18648131 (Version 1)
Quarter: 2020Q4

REPORT INFORMATION
  Report Type: Spontaneous
  Country: CA (occurrence: CA)
  Receive Date: 20201222
  Receipt Date: 20201222
  Transmission Date: 20210114
  Serious: Yes (Life-Threatening, Hospitalization)
  Sender: FDA-Public Use
  Company Number: CA-SA-2020SA365380

PATIENT

DRUGS (20)
  1. MABCAMPATH [Suspect]
     Active Substance: ALEMTUZUMAB
     Indication: BONE MARROW FAILURE
     Dosage: 10 MG, QD
     Route: 042
  2. ALLOPURINOL. [Concomitant]
     Active Substance: ALLOPURINOL
  3. LACTULOSE. [Concomitant]
     Active Substance: LACTULOSE
  4. PREDNISONE. [Concomitant]
     Active Substance: PREDNISONE
  5. ZOPICLONE [Concomitant]
     Active Substance: ZOPICLONE
  6. PIPERACILLIN AND TAZOBACTAM [Suspect]
     Active Substance: PIPERACILLIN SODIUM\TAZOBACTAM SODIUM
     Indication: INFECTION
     Dosage: 5 G, Q6H
     Route: 042
  7. ACYCLOVIR [ACICLOVIR] [Concomitant]
     Active Substance: ACYCLOVIR
  8. CETRIZINE [Concomitant]
     Active Substance: CETIRIZINE HYDROCHLORIDE
  9. MEROPENEM. [Concomitant]
     Active Substance: MEROPENEM
  10. PANTOPRAZOLE [Concomitant]
     Active Substance: PANTOPRAZOLE
  11. SENNOSIDES. [Concomitant]
     Active Substance: SENNOSIDES
  12. ACETAMINOPHEN. [Concomitant]
     Active Substance: ACETAMINOPHEN
  13. METHYLPREDNISOLONE. [Concomitant]
     Active Substance: METHYLPREDNISOLONE
  14. VANCOMYCIN [Concomitant]
     Active Substance: VANCOMYCIN
  15. COLCHICINE. [Concomitant]
     Active Substance: COLCHICINE
  16. MYCAMINE [Concomitant]
     Active Substance: MICAFUNGIN SODIUM
  17. SECARIS [Concomitant]
     Active Substance: PROPYLENE GLYCOL
  18. BACTRIM [Concomitant]
     Active Substance: SULFAMETHOXAZOLE\TRIMETHOPRIM
  19. BENADRYL [Concomitant]
     Active Substance: DIPHENHYDRAMINE HYDROCHLORIDE
  20. ZOFRAN [Concomitant]
     Active Substance: ONDANSETRON HYDROCHLORIDE

REACTIONS (2)
  - Drug eruption [Unknown]
  - Pneumonitis [Unknown]
